FAERS Safety Report 7621957-1 (Version None)
Quarter: 2011Q3

REPORT INFORMATION
  Report Type: 
  Country: None (occurrence: None)
  Receive Date: 20110720
  Receipt Date: 20110325
  Transmission Date: 20111222
  Serious: Yes (Hospitalization)
  Sender: FDA-Public Use
  Company Number: IT-BAYER-2011-024576

PATIENT
  Age: 77 Year
  Sex: Male

DRUGS (8)
  1. ENALAPRIL MALEATE [Concomitant]
     Dosage: DAILY DOSE 20 MG
     Route: 048
  2. ASPIRIN [Suspect]
     Dosage: 100 MG, QD
     Route: 048
     Dates: start: 20100101, end: 20110115
  3. BISOPROLOL FUMARATE [Concomitant]
     Dosage: DAILY DOSE 2.5 MG
     Route: 048
  4. AMARYL [Concomitant]
     Dosage: DAILY DOSE 4 MG
     Route: 048
  5. FERROUS SULFATE TAB [Concomitant]
     Dosage: DAILY DOSE 105 MG
  6. CLOPIDOGREL [Suspect]
     Indication: MYOCARDIAL ISCHAEMIA
     Dosage: DAILY DOSE 75 MG
     Route: 048
     Dates: start: 20100101, end: 20110115
  7. PANTOPRAZOLE SODIUM [Concomitant]
     Dosage: DAILY DOSE 40 MG
     Route: 048
  8. ATORVASTATIN [Concomitant]
     Dosage: DAILY DOSE 20 MG
     Route: 048

REACTIONS (1)
  - HAEMOPTYSIS [None]
